FAERS Safety Report 8822770 (Version 3)
Quarter: 2013Q1

REPORT INFORMATION
  Report Type: Report from Study
  Country: US (occurrence: US)
  Receive Date: 20121003
  Receipt Date: 20130102
  Transmission Date: 20140127
  Serious: Yes (Hospitalization)
  Sender: FDA-Public Use
  Company Number: US-JNJFOC-20121000786

PATIENT
  Age: 16 Year
  Sex: Male
  Weight: 80.74 kg

DRUGS (8)
  1. REMICADE [Suspect]
     Indication: INFLAMMATORY BOWEL DISEASE
     Route: 042
     Dates: start: 20111030, end: 20111201
  2. ANTIBIOTICS [Concomitant]
     Indication: INFLAMMATORY BOWEL DISEASE
  3. IMODIUM [Concomitant]
     Dosage: LOPERAMIDE
  4. MULTIVITAMINS [Concomitant]
  5. HYDROCORTISONE [Concomitant]
  6. URSODIOL [Concomitant]
  7. VITAMIN D [Concomitant]
  8. TYLENOL [Concomitant]
     Dosage: ACETAMINOPHEN

REACTIONS (1)
  - Pouchitis [Recovered/Resolved]
